FAERS Safety Report 5476464-1 (Version None)
Quarter: 2007Q3

REPORT INFORMATION
  Report Type: 
  Country: None (occurrence: None)
  Receive Date: 20070904
  Receipt Date: 20070720
  Transmission Date: 20080115
  Serious: No
  Sender: FDA-Public Use
  Company Number: PHEH2007US10286

PATIENT
  Sex: Female

DRUGS (1)
  1. ENABLEX [Suspect]
     Dosage: 15 MG, QD, ORAL;  30 MG, ONCE/SINGLE, ORAL
     Route: 048

REACTIONS (1)
  - ACCIDENTAL OVERDOSE [None]
